FAERS Safety Report 18598729 (Version 1)
Quarter: 2020Q4

REPORT INFORMATION
  Report Type: Spontaneous
  Country: US (occurrence: US)
  Receive Date: 20201210
  Receipt Date: 20201210
  Transmission Date: 20210114
  Serious: Yes (Hospitalization)
  Sender: FDA-Public Use
  Company Number: US-ROCHE-2728886

PATIENT
  Sex: Male

DRUGS (1)
  1. ROZLYTREK [Suspect]
     Active Substance: ENTRECTINIB
     Indication: LUNG NEOPLASM MALIGNANT
     Dosage: ONCE DAILY BY MOUTH; ONGOING: YES
     Route: 048
     Dates: start: 20201028

REACTIONS (3)
  - Hepatic failure [Unknown]
  - Dizziness [Unknown]
  - Nausea [Unknown]
